FAERS Safety Report 23961898 (Version 6)
Quarter: 2025Q4

REPORT INFORMATION
  Report Type: Spontaneous
  Country: US (occurrence: US)
  Receive Date: 20240611
  Receipt Date: 20251031
  Transmission Date: 20260118
  Serious: No
  Sender: PFIZER
  Company Number: US-PFIZER INC-202400187860

PATIENT
  Age: 12 Year
  Sex: Male

DRUGS (2)
  1. GENOTROPIN [Suspect]
     Active Substance: SOMATROPIN
     Indication: Growth disorder
     Dosage: 1.6 MG AND 1.8 MG EVERY OTHER DAY TO EQUAL 1.7 MG
     Dates: start: 202401
  2. GENOTROPIN [Suspect]
     Active Substance: SOMATROPIN
     Dosage: 1.6 MG AND 1.8 MG EVERY OTHER DAY TO EQUAL 1.7 MG
     Dates: start: 202401

REACTIONS (5)
  - Device leakage [Unknown]
  - Device information output issue [Unknown]
  - Device issue [Unknown]
  - Device failure [Unknown]
  - Drug dose omission by device [Unknown]
